FAERS Safety Report 6275661-5 (Version None)
Quarter: 2009Q3

REPORT INFORMATION
  Report Type: 
  Country: None (occurrence: None)
  Receive Date: 20090721
  Receipt Date: 20090701
  Transmission Date: 20100115
  Serious: Yes (Hospitalization)
  Sender: FDA-Public Use
  Company Number: JP-GENENTECH-285437

PATIENT
  Sex: Female
  Weight: 44.8 kg

DRUGS (10)
  1. BEVACIZUMAB [Suspect]
     Indication: COLON CANCER
     Dosage: 220 MG, Q2W
     Route: 042
     Dates: start: 20090309, end: 20090525
  2. IRINOTECAN HCL [Concomitant]
     Indication: COLON CANCER
     Dosage: 130 MG, DAYS 1+15
     Dates: start: 20090309, end: 20090525
  3. TS-1 [Concomitant]
     Indication: COLON CANCER
     Dosage: 40 MG, BID
     Dates: start: 20090309, end: 20090323
  4. TS-1 [Concomitant]
     Dosage: 40 MG, QAM
     Dates: start: 20090406, end: 20090525
  5. TS-1 [Concomitant]
     Dosage: 20 MG, QPM
     Dates: start: 20090406, end: 20090525
  6. NAPROXEN [Concomitant]
     Indication: DRUG USE FOR UNKNOWN INDICATION
     Dosage: UNK
     Dates: start: 20090313
  7. FAMOTIDINE [Concomitant]
     Indication: DRUG USE FOR UNKNOWN INDICATION
     Dosage: UNK
     Dates: start: 20090309
  8. LASIX [Concomitant]
     Indication: DRUG USE FOR UNKNOWN INDICATION
     Dosage: UNK
     Dates: start: 20090427
  9. MAGNESIUM OXIDE [Concomitant]
     Indication: DRUG USE FOR UNKNOWN INDICATION
  10. OXYCONTIN [Concomitant]
     Indication: DRUG USE FOR UNKNOWN INDICATION
     Dosage: UNK
     Dates: start: 20090318

REACTIONS (1)
  - CHOLANGITIS SCLEROSING [None]
